FAERS Safety Report 23654169 (Version 1)
Quarter: 2024Q1

REPORT INFORMATION
  Report Type: Spontaneous
  Country: US (occurrence: None)
  Receive Date: 20240320
  Receipt Date: 20240320
  Transmission Date: 20240410
  Serious: Yes (Hospitalization)
  Sender: FDA-Public Use
  Company Number: None

PATIENT
  Age: 86 Year
  Sex: Female
  Weight: 73.48 kg

DRUGS (1)
  1. OFEV [Suspect]
     Active Substance: NINTEDANIB

REACTIONS (4)
  - Hemiparesis [None]
  - Confusional state [None]
  - Aphasia [None]
  - Middle cerebral artery stroke [None]

NARRATIVE: CASE EVENT DATE: 20240127
